FAERS Safety Report 4545080-8 (Version None)
Quarter: 2005Q1

REPORT INFORMATION
  Report Type: 
  Country: None (occurrence: None)
  Receive Date: 20050103
  Receipt Date: 20041222
  Transmission Date: 20050727
  Serious: Yes (Hospitalization)
  Sender: FDA-Public Use
  Company Number: 2004110155

PATIENT
  Age: 8 Year
  Sex: Male
  Weight: 39 kg

DRUGS (3)
  1. ZITHROMAX [Suspect]
     Indication: ILL-DEFINED DISORDER
     Dates: start: 20020806, end: 20041124
  2. CARBOCISTEINE (CARBOCISTEINE) [Concomitant]
  3. ACETAMINOPHEN [Concomitant]

REACTIONS (9)
  - ABDOMINAL PAIN [None]
  - CHEST PAIN [None]
  - COUGH [None]
  - DRUG ERUPTION [None]
  - ERYTHEMA MULTIFORME [None]
  - HYPOXIA [None]
  - INSOMNIA [None]
  - PHARYNGOLARYNGEAL PAIN [None]
  - VIRAL INFECTION [None]
